FAERS Safety Report 11349971 (Version 1)
Quarter: 2015Q3

REPORT INFORMATION
  Report Type: Spontaneous
  Country: US (occurrence: None)
  Receive Date: 20150806
  Receipt Date: 20150806
  Transmission Date: 20151125
  Serious: No
  Sender: FDA-Public Use
  Company Number: None

PATIENT
  Age: 81 Year
  Sex: Male
  Weight: 111.13 kg

DRUGS (9)
  1. DSS [Concomitant]
     Active Substance: DOCUSATE SODIUM
  2. VIT(S) C, D, E [Concomitant]
  3. LEVOTHYROXINE. [Concomitant]
     Active Substance: LEVOTHYROXINE
  4. CARVEDILOL 25 MG [Suspect]
     Active Substance: CARVEDILOL
     Indication: HEART VALVE INCOMPETENCE
     Route: 048
     Dates: start: 20150726, end: 20150731
  5. SIMASTATIN [Concomitant]
  6. CARVEDILOL 25 MG [Suspect]
     Active Substance: CARVEDILOL
     Indication: HYPERTENSION
     Route: 048
     Dates: start: 20150726, end: 20150731
  7. LOSARTAN. [Concomitant]
     Active Substance: LOSARTAN
  8. FUROSEMIDE. [Concomitant]
     Active Substance: FUROSEMIDE
  9. BETA CARATENE [Concomitant]

REACTIONS (3)
  - Drug ineffective [None]
  - Blood pressure fluctuation [None]
  - Product substitution issue [None]

NARRATIVE: CASE EVENT DATE: 20150731
